FAERS Safety Report 5285386-0 (Version None)
Quarter: 2007Q1

REPORT INFORMATION
  Report Type: 
  Country: None (occurrence: None)
  Receive Date: 20070328
  Receipt Date: 20070312
  Transmission Date: 20070707
  Serious: Yes (Hospitalization)
  Sender: FDA-Public Use
  Company Number: 190002L07JPN

PATIENT
  Age: 43 Year
  Sex: Female

DRUGS (2)
  1. MENOTROPINS [Suspect]
     Indication: IN VITRO FERTILISATION
  2. CLOMID [Suspect]
     Indication: IN VITRO FERTILISATION

REACTIONS (2)
  - ABORTION INDUCED [None]
  - TWIN PREGNANCY [None]
